FAERS Safety Report 16306565 (Version 3)
Quarter: 2021Q1

REPORT INFORMATION
  Report Type: Spontaneous
  Country: US (occurrence: US)
  Receive Date: 20190513
  Receipt Date: 20210202
  Transmission Date: 20210419
  Serious: Yes (Hospitalization, Other)
  Sender: FDA-Public Use
  Company Number: US-ASTRAZENECA-2019SE66468

PATIENT
  Age: 52 Year
  Sex: Female
  Weight: 70.3 kg

DRUGS (46)
  1. NEXIUM [Suspect]
     Active Substance: ESOMEPRAZOLE MAGNESIUM
     Indication: GASTROOESOPHAGEAL REFLUX DISEASE
     Dosage: GENERIC
     Route: 065
     Dates: start: 201501, end: 202010
  2. METFORMIN [Concomitant]
     Active Substance: METFORMIN HYDROCHLORIDE
     Indication: TYPE 2 DIABETES MELLITUS
     Dates: start: 20090206, end: 20090310
  3. IPRATROPIUM [Concomitant]
     Active Substance: IPRATROPIUM
  4. XARELTO [Concomitant]
     Active Substance: RIVAROXABAN
  5. FLUOXETINE [Concomitant]
     Active Substance: FLUOXETINE HYDROCHLORIDE
     Route: 065
     Dates: start: 20071123
  6. AVAPRO [Concomitant]
     Active Substance: IRBESARTAN
  7. CLINDAMYCIN. [Concomitant]
     Active Substance: CLINDAMYCIN
  8. LEXAPRO [Concomitant]
     Active Substance: ESCITALOPRAM OXALATE
  9. NYSTATIN. [Concomitant]
     Active Substance: NYSTATIN
  10. CLONAZEPAM. [Concomitant]
     Active Substance: CLONAZEPAM
  11. HOMATROPINE [Concomitant]
     Active Substance: HOMATROPINE HYDROBROMIDE
  12. LOPERAMIDE [Concomitant]
     Active Substance: LOPERAMIDE
     Route: 065
  13. SIMVASTATIN. [Concomitant]
     Active Substance: SIMVASTATIN
  14. SPIRONOLACTONE. [Concomitant]
     Active Substance: SPIRONOLACTONE
  15. VENLAFAXINE [Concomitant]
     Active Substance: VENLAFAXINE HYDROCHLORIDE
  16. CYCLOBENZAPRINE. [Concomitant]
     Active Substance: CYCLOBENZAPRINE
  17. NEXIUM [Suspect]
     Active Substance: ESOMEPRAZOLE MAGNESIUM
     Indication: GASTROOESOPHAGEAL REFLUX DISEASE
     Route: 048
  18. PREVACID [Suspect]
     Active Substance: LANSOPRAZOLE
     Route: 065
  19. ZEGERID [Suspect]
     Active Substance: OMEPRAZOLE\SODIUM BICARBONATE
     Route: 065
  20. HYDROCODONE?ACETAMINOPHEN [Concomitant]
     Active Substance: ACETAMINOPHEN\HYDROCODONE
     Indication: PAIN
     Dates: start: 20080409, end: 20091109
  21. WARFARIN [Concomitant]
     Active Substance: WARFARIN
  22. ZOLPIDEM [Concomitant]
     Active Substance: ZOLPIDEM TARTRATE
  23. CYMBALTA [Concomitant]
     Active Substance: DULOXETINE HYDROCHLORIDE
  24. NEXIUM [Suspect]
     Active Substance: ESOMEPRAZOLE MAGNESIUM
     Indication: GASTROOESOPHAGEAL REFLUX DISEASE
     Route: 048
     Dates: start: 20080815
  25. AMLODIPINE?BENZEPRIL [Concomitant]
     Indication: HYPERTENSION
     Dates: start: 20090618, end: 20100225
  26. PREDNISONE. [Concomitant]
     Active Substance: PREDNISONE
  27. FLUCONAZOLE. [Concomitant]
     Active Substance: FLUCONAZOLE
  28. PRAVASTATIN. [Concomitant]
     Active Substance: PRAVASTATIN
  29. FLUTICASONE. [Concomitant]
     Active Substance: FLUTICASONE
  30. NEXIUM [Suspect]
     Active Substance: ESOMEPRAZOLE MAGNESIUM
     Indication: GASTROOESOPHAGEAL REFLUX DISEASE
     Route: 048
     Dates: start: 2001, end: 201501
  31. PROTONIX [Suspect]
     Active Substance: PANTOPRAZOLE SODIUM
     Indication: GASTROOESOPHAGEAL REFLUX DISEASE
     Route: 065
     Dates: start: 2000, end: 201101
  32. PROTONIX [Suspect]
     Active Substance: PANTOPRAZOLE SODIUM
     Indication: GASTROOESOPHAGEAL REFLUX DISEASE
     Dosage: GENERIC
     Route: 065
     Dates: start: 201101, end: 202010
  33. TUMS [Concomitant]
     Active Substance: CALCIUM CARBONATE
     Dosage: 2?3 TABLETS, 3?4 TIMES DAILY
     Dates: start: 2018
  34. LITHIUM CARBONATE. [Concomitant]
     Active Substance: LITHIUM CARBONATE
  35. OXYBUTYNIN. [Concomitant]
     Active Substance: OXYBUTYNIN CHLORIDE
     Route: 065
  36. DICYCLOMINE [Concomitant]
     Active Substance: DICYCLOMINE HYDROCHLORIDE
     Route: 065
     Dates: start: 20071026
  37. TOPAMAX [Concomitant]
     Active Substance: TOPIRAMATE
  38. BENAZEPRIL [Concomitant]
     Active Substance: BENAZEPRIL HYDROCHLORIDE
  39. ISRADIPINE. [Concomitant]
     Active Substance: ISRADIPINE
  40. KLOR?CON [Concomitant]
     Active Substance: POTASSIUM CHLORIDE
  41. TIZANIDINE. [Concomitant]
     Active Substance: TIZANIDINE
  42. LEVOTHYROXINE. [Concomitant]
     Active Substance: LEVOTHYROXINE
     Indication: HYPOTHYROIDISM
     Dates: start: 20080126, end: 20110216
  43. TRAMADOL. [Concomitant]
     Active Substance: TRAMADOL
     Indication: PAIN
     Dates: start: 20091107, end: 20091210
  44. PRILOSEC OTC [Suspect]
     Active Substance: OMEPRAZOLE MAGNESIUM
     Route: 048
  45. PROTONIX [Suspect]
     Active Substance: PANTOPRAZOLE SODIUM
     Indication: GASTROOESOPHAGEAL REFLUX DISEASE
     Route: 065
  46. CLARITHROMYCIN. [Concomitant]
     Active Substance: CLARITHROMYCIN

REACTIONS (4)
  - Renal failure [Unknown]
  - Renal tubular necrosis [Unknown]
  - Acute kidney injury [Not Recovered/Not Resolved]
  - Chronic kidney disease [Unknown]

NARRATIVE: CASE EVENT DATE: 2012
